FAERS Safety Report 6171781-4 (Version None)
Quarter: 2009Q2

REPORT INFORMATION
  Report Type: 
  Country: None (occurrence: None)
  Receive Date: 20090429
  Receipt Date: 20090423
  Transmission Date: 20091009
  Serious: Yes (Other)
  Sender: FDA-Public Use
  Company Number: FR-JNJCH-2009011284

PATIENT
  Age: 35 Year
  Sex: Male

DRUGS (1)
  1. ALOSTIL 5% [Suspect]
     Indication: ALOPECIA
     Dosage: TEXT:ONE APPLICATION UNSPECIFIED
     Route: 061
     Dates: start: 20080901, end: 20090401

REACTIONS (1)
  - LIBIDO DECREASED [None]
